FAERS Safety Report 4662168-1 (Version None)
Quarter: 2005Q2

REPORT INFORMATION
  Report Type: 
  Country: None (occurrence: None)
  Receive Date: 20050512
  Receipt Date: 20050429
  Transmission Date: 20051028
  Serious: Yes (Other)
  Sender: FDA-Public Use
  Company Number: HQWYE500303MAY05

PATIENT
  Age: 53 Year
  Sex: Female
  Weight: 74.91 kg

DRUGS (5)
  1. PREMARIN [Suspect]
     Dosage: SEE IMAGE
     Route: 048
     Dates: start: 19770101, end: 20040902
  2. PREMARIN [Suspect]
     Dosage: SEE IMAGE
     Route: 048
     Dates: start: 20041001
  3. THYROID TAB [Suspect]
     Indication: HYPOTHYROIDISM
     Dosage: 180 MCG DAILY DECREASED TO 90 MCG
     Dates: start: 19750101
  4. COMBIPATCH [Suspect]
     Dosage: 50/140 , TOPICAL
     Route: 061
     Dates: start: 20040903, end: 20041001
  5. SYNTHROID [Suspect]
     Indication: HYPOTHYROIDISM
     Dosage: 0.137MG DAILY, ORAL
     Route: 048

REACTIONS (15)
  - APPLICATION SITE DERMATITIS [None]
  - DEPRESSION [None]
  - DRUG INTERACTION [None]
  - DRUG LEVEL DECREASED [None]
  - DYSPNOEA [None]
  - FEELING COLD [None]
  - HYPERHIDROSIS [None]
  - HYPOAESTHESIA ORAL [None]
  - LIBIDO DECREASED [None]
  - LIP PAIN [None]
  - MOOD SWINGS [None]
  - MUSCLE SPASMS [None]
  - SKIN CANCER [None]
  - UNEVALUABLE EVENT [None]
  - VAGINAL MYCOSIS [None]
